FAERS Safety Report 25271266 (Version 2)
Quarter: 2025Q3

REPORT INFORMATION
  Report Type: Spontaneous
  Country: JP (occurrence: JP)
  Receive Date: 20250506
  Receipt Date: 20250701
  Transmission Date: 20251020
  Serious: Yes (Death, Hospitalization, Disabling, Other)
  Sender: ROCHE
  Company Number: JP-CHUGAI-2025013917

PATIENT
  Age: 46 Year
  Sex: Female

DRUGS (5)
  1. AVASTIN [Suspect]
     Active Substance: BEVACIZUMAB
     Indication: Breast cancer
     Route: 042
  2. GLYCERIN [Suspect]
     Active Substance: GLYCERIN
     Indication: Brain oedema
     Route: 065
  3. BETAMETHASONE SODIUM PHOSPHATE [Suspect]
     Active Substance: BETAMETHASONE SODIUM PHOSPHATE
     Indication: Brain oedema
     Route: 065
  4. DICLOFENAC SODIUM [Suspect]
     Active Substance: DICLOFENAC SODIUM
     Indication: Brain oedema
     Route: 061
  5. PACLITAXEL [Suspect]
     Active Substance: PACLITAXEL
     Indication: Breast cancer
     Route: 042

REACTIONS (4)
  - Gastric perforation [Recovered/Resolved]
  - Stress [Unknown]
  - Brain oedema [Unknown]
  - Disease progression [Fatal]

NARRATIVE: CASE EVENT DATE: 20250422
